FAERS Safety Report 8362012 (Version 10)
Quarter: 2014Q2

REPORT INFORMATION
  Report Type: Report from Study
  Country: BR (occurrence: BR)
  Receive Date: 20120130
  Receipt Date: 20140403
  Transmission Date: 20141212
  Serious: Yes (Disabling, Other)
  Sender: FDA-Public Use
  Company Number: BR-ROCHE-1033550

PATIENT
  Age: 61 Year
  Sex: Female
  Weight: 67 kg

DRUGS (8)
  1. ACTEMRA [Suspect]
     Indication: AUTOIMMUNE DISORDER
     Route: 042
     Dates: start: 20111104, end: 20111219
  2. ACTEMRA [Suspect]
     Route: 042
     Dates: start: 201211
  3. MABTHERA [Suspect]
     Indication: AUTOIMMUNE DISORDER
     Route: 042
     Dates: start: 20111104
  4. MABTHERA [Suspect]
     Route: 042
     Dates: start: 20111219
  5. METHOTREXATE [Suspect]
     Indication: PRODUCT USED FOR UNKNOWN INDICATION
     Route: 065
  6. CODATEN [Suspect]
     Indication: PRODUCT USED FOR UNKNOWN INDICATION
     Route: 065
  7. PREDSIM [Concomitant]
     Route: 065
  8. SELOZOK [Concomitant]
     Indication: ARRHYTHMIA

REACTIONS (16)
  - Deafness [Not Recovered/Not Resolved]
  - Spinal disorder [Not Recovered/Not Resolved]
  - Cervical radiculopathy [Not Recovered/Not Resolved]
  - Hepatic cirrhosis [Not Recovered/Not Resolved]
  - Gamma-glutamyltransferase increased [Recovered/Resolved]
  - Hepatic steatosis [Not Recovered/Not Resolved]
  - Intervertebral disc protrusion [Unknown]
  - Hepatic function abnormal [Recovered/Resolved]
  - Cardiac murmur [Unknown]
  - Hepatomegaly [Unknown]
  - Alopecia [Recovered/Resolved]
  - Hypothyroidism [Recovered/Resolved]
  - Blood glucose increased [Not Recovered/Not Resolved]
  - Blood triglycerides increased [Not Recovered/Not Resolved]
  - Intraocular pressure increased [Recovered/Resolved]
  - Tinnitus [Not Recovered/Not Resolved]
